FAERS Safety Report 5871891-2 (Version None)
Quarter: 2008Q3

REPORT INFORMATION
  Report Type: 
  Country: None (occurrence: None)
  Receive Date: 20080905
  Receipt Date: 20080812
  Transmission Date: 20090109
  Serious: Yes (Other)
  Sender: FDA-Public Use
  Company Number: FR-BAYER-200825065GPV

PATIENT
  Age: 20 Year
  Sex: Female

DRUGS (2)
  1. CIPROFLOXACIN [Suspect]
     Indication: TYPHOID FEVER
     Route: 065
  2. DOXYCYCLINE [Concomitant]
     Indication: SCRUB TYPHUS
     Route: 065

REACTIONS (1)
  - STILLBIRTH [None]
